FAERS Safety Report 4821264-6 (Version None)
Quarter: 2005Q4

REPORT INFORMATION
  Report Type: 
  Country: None (occurrence: None)
  Receive Date: 20051107
  Receipt Date: 20051013
  Transmission Date: 20060501
  Serious: Yes (Life-Threatening, Hospitalization)
  Sender: FDA-Public Use
  Company Number: FR-RB-2136-2005

PATIENT
  Age: 24 Year
  Sex: Male
  Weight: 80 kg

DRUGS (1)
  1. BUPRENORPHINE HCL [Suspect]
     Dosage: 2 TABLETS WITH TAP WATER
     Route: 042

REACTIONS (5)
  - DEEP VEIN THROMBOSIS [None]
  - ENDOCARDITIS [None]
  - HEPATIC CIRRHOSIS [None]
  - INTENTIONAL DRUG MISUSE [None]
  - MULTI-ORGAN FAILURE [None]
